FAERS Safety Report 20739237 (Version 2)
Quarter: 2023Q4

REPORT INFORMATION
  Report Type: Spontaneous
  Country: US (occurrence: US)
  Receive Date: 20220422
  Receipt Date: 20231222
  Transmission Date: 20240109
  Serious: No
  Sender: FDA-Public Use
  Company Number: US-BAYER-2022A054101

PATIENT
  Age: 22 Year
  Sex: Female

DRUGS (3)
  1. KYLEENA [Suspect]
     Active Substance: LEVONORGESTREL
     Indication: Intra-uterine contraceptive device insertion
     Dosage: 17.5?G/DAY
     Route: 015
     Dates: start: 20220120
  2. KYLEENA [Suspect]
     Active Substance: LEVONORGESTREL
     Indication: Contraception
  3. HUMIRA [Concomitant]
     Active Substance: ADALIMUMAB
     Indication: Hidradenitis

REACTIONS (2)
  - Inflammation [None]
  - Drug ineffective [None]

NARRATIVE: CASE EVENT DATE: 20220301
